FAERS Safety Report 21224019 (Version 1)
Quarter: 2022Q3

REPORT INFORMATION
  Report Type: Spontaneous
  Country: US (occurrence: US)
  Receive Date: 20220817
  Receipt Date: 20220817
  Transmission Date: 20221027
  Serious: No
  Sender: FDA-Public Use
  Company Number: US-SA-2021MK000103

PATIENT
  Age: 76 Year
  Sex: Female

DRUGS (2)
  1. AFREZZA [Suspect]
     Active Substance: INSULIN HUMAN
     Indication: Diabetes mellitus
  2. AFREZZA [Suspect]
     Active Substance: INSULIN HUMAN

REACTIONS (1)
  - Malaise [Unknown]
